FAERS Safety Report 4580430-8 (Version None)
Quarter: 2005Q1

REPORT INFORMATION
  Report Type: 
  Country: None (occurrence: None)
  Receive Date: 20050214
  Receipt Date: 20040122
  Transmission Date: 20050727
  Serious: Yes (Hospitalization)
  Sender: FDA-Public Use
  Company Number: US-GLAXOSMITHKLINE-A0494699A

PATIENT

DRUGS (1)
  1. LAMICTAL [Suspect]
     Indication: ILL-DEFINED DISORDER
     Route: 048
     Dates: start: 20040116

REACTIONS (2)
  - RASH [None]
  - STOMATITIS [None]
